FAERS Safety Report 13472118 (Version 1)
Quarter: 2017Q2

REPORT INFORMATION
  Report Type: Report from Study
  Country: US (occurrence: US)
  Receive Date: 20170424
  Receipt Date: 20170424
  Transmission Date: 20170830
  Serious: No
  Sender: FDA-Public Use
  Company Number: US-AMGEN-USASL2017056474

PATIENT
  Age: 26 Year
  Sex: Male

DRUGS (1)
  1. ENBREL [Suspect]
     Active Substance: ETANERCEPT
     Indication: ANKYLOSING SPONDYLITIS
     Dosage: 50 MG, QWK
     Route: 065

REACTIONS (7)
  - Injection site coldness [Unknown]
  - Injection site pain [Unknown]
  - Drug dose omission [Unknown]
  - Paranasal sinus hypersecretion [Unknown]
  - Oropharyngeal pain [Unknown]
  - Cough [Unknown]
  - Viral upper respiratory tract infection [Unknown]
